FAERS Safety Report 5419564-4 (Version None)
Quarter: 2007Q3

REPORT INFORMATION
  Report Type: 
  Country: None (occurrence: None)
  Receive Date: 20070820
  Receipt Date: 20070814
  Transmission Date: 20080115
  Serious: Yes (Hospitalization)
  Sender: FDA-Public Use
  Company Number: FR-AVENTIS-200712589FR

PATIENT
  Age: 38 Year
  Sex: Male

DRUGS (5)
  1. FLAGYL [Suspect]
     Indication: INTESTINAL OBSTRUCTION
     Route: 042
     Dates: start: 20070406, end: 20070415
  2. ROCEPHIN [Suspect]
     Indication: INTESTINAL OBSTRUCTION
     Route: 042
     Dates: start: 20070406, end: 20070415
  3. OMEPRAZOLE [Concomitant]
     Route: 042
     Dates: start: 20070406, end: 20070415
  4. FRAXIPARINE [Concomitant]
     Route: 042
     Dates: start: 20070406, end: 20070415
  5. PERFALGAN [Concomitant]
     Route: 042
     Dates: start: 20070406, end: 20070415

REACTIONS (1)
  - DERMATITIS EXFOLIATIVE [None]
